FAERS Safety Report 5381646-3 (Version None)
Quarter: 2007Q2

REPORT INFORMATION
  Report Type: 
  Country: None (occurrence: None)
  Receive Date: 20070629
  Receipt Date: 20060727
  Transmission Date: 20071010
  Serious: Yes (Other)
  Sender: FDA-Public Use
  Company Number: 2006092963

PATIENT
  Age: 27 Year
  Sex: Female
  Weight: 65.7716 kg

DRUGS (3)
  1. ZOLOFT [Suspect]
     Indication: DEPRESSION
     Dosage: 100 MG
     Dates: start: 20051101, end: 20060724
  2. ZOLOFT [Suspect]
     Indication: MOOD SWINGS
     Dosage: 100 MG
     Dates: start: 20051101, end: 20060724
  3. MOTRIN [Concomitant]

REACTIONS (4)
  - AMENORRHOEA [None]
  - BREAST ENLARGEMENT [None]
  - BREAST PAIN [None]
  - GALACTORRHOEA [None]
